FAERS Safety Report 13346577 (Version 1)
Quarter: 2017Q1

REPORT INFORMATION
  Report Type: Spontaneous
  Country: FR (occurrence: FR)
  Receive Date: 20170317
  Receipt Date: 20170317
  Transmission Date: 20170428
  Serious: Yes (Hospitalization)
  Sender: FDA-Public Use
  Company Number: FR-PFIZER INC-2017109996

PATIENT
  Age: 48 Year
  Sex: Female

DRUGS (7)
  1. LYRICA [Suspect]
     Active Substance: PREGABALIN
     Dosage: 38 DF, UNK
     Route: 048
     Dates: start: 20170129, end: 20170129
  2. LUTENYL [Suspect]
     Active Substance: NOMEGESTROL ACETATE
     Dosage: UNK
     Route: 048
  3. LUTENYL [Suspect]
     Active Substance: NOMEGESTROL ACETATE
     Dosage: 10 DF, UNK
     Route: 048
     Dates: start: 20170129, end: 20170129
  4. NORDAZ [Suspect]
     Active Substance: NORDAZEPAM
     Dosage: UNK
     Route: 048
     Dates: start: 20170129, end: 20170129
  5. LYRICA [Suspect]
     Active Substance: PREGABALIN
     Dosage: UNK
     Route: 048
  6. DEPAMIDE [Suspect]
     Active Substance: VALPROMIDE
     Dosage: UNK
     Route: 048
     Dates: start: 20170129, end: 20170129
  7. DEPAMIDE [Suspect]
     Active Substance: VALPROMIDE
     Dosage: UNK
     Route: 048

REACTIONS (16)
  - Rhabdomyolysis [Unknown]
  - Urinary tract infection [Unknown]
  - Confusional state [Recovered/Resolved]
  - Transaminases increased [Recovered/Resolved]
  - Intentional overdose [Unknown]
  - Sinus tachycardia [Recovered/Resolved]
  - Toxicity to various agents [Unknown]
  - Hypothermia [Recovered/Resolved]
  - Hypertension [Unknown]
  - Coma [Recovered/Resolved]
  - Acute kidney injury [Recovering/Resolving]
  - Hypoglycaemia [Recovered/Resolved]
  - Hypertonia [Recovered/Resolved]
  - Pancytopenia [Recovering/Resolving]
  - Mydriasis [Recovered/Resolved]
  - Clostridium difficile colitis [Unknown]

NARRATIVE: CASE EVENT DATE: 20170129
